FAERS Safety Report 9455677 (Version 1)
Quarter: 2013Q3

REPORT INFORMATION
  Report Type: Report from Study
  Country: CL (occurrence: CL)
  Receive Date: 20130813
  Receipt Date: 20130813
  Transmission Date: 20140515
  Serious: Yes (Other)
  Sender: FDA-Public Use
  Company Number: CL-ROCHE-1260940

PATIENT
  Age: 56 Year
  Sex: Female
  Weight: 64 kg

DRUGS (3)
  1. XELODA [Suspect]
     Indication: BREAST CANCER
     Dosage: 14-DAY-CYCLE, LAST DOSE ON 11/JUL/2013
     Route: 048
     Dates: start: 20120907, end: 20130806
  2. IXABEPILONE [Suspect]
     Indication: BREAST CANCER
     Route: 042
     Dates: start: 20130418, end: 20130806
  3. ZOLEDRONIC ACID [Concomitant]
     Indication: BONE METABOLISM DISORDER
     Route: 042

REACTIONS (2)
  - Metastasis [Unknown]
  - Drug ineffective [Unknown]
